FAERS Safety Report 7790542 (Version 4)
Quarter: 2014Q3

REPORT INFORMATION
  Report Type: Spontaneous
  Country: US (occurrence: None)
  Receive Date: 20110106
  Receipt Date: 20140729
  Transmission Date: 20150326
  Serious: Yes (Life-Threatening, Hospitalization)
  Sender: FDA-Public Use
  Company Number: AUR-APL-2010-03193

PATIENT
  Age: 20 Year
  Sex: Male

DRUGS (4)
  1. CEFTRIAXONE. [Suspect]
     Active Substance: CEFTRIAXONE
     Indication: TENOSYNOVITIS
     Dosage: 1DF, ONCE, UNKNOWN
  2. DOXYCYCLINE. [Suspect]
     Active Substance: DOXYCYCLINE
     Indication: TENOSYNOVITIS
  3. VANCOMYCIN [Suspect]
     Active Substance: VANCOMYCIN
     Indication: TENOSYNOVITIS
     Dosage: 1 DF, ONCE, UNKNOWN
  4. SEPTRA [Suspect]
     Active Substance: SULFAMETHOXAZOLE\TRIMETHOPRIM
     Indication: TENOSYNOVITIS
     Dosage: 1 DF, UNK, ORAL
     Route: 048

REACTIONS (13)
  - Disseminated intravascular coagulation [None]
  - Splenic infarction [None]
  - Lichenoid keratosis [None]
  - Renal failure [None]
  - Myalgia [None]
  - Septic shock [None]
  - Drug reaction with eosinophilia and systemic symptoms [None]
  - Human herpesvirus 6 infection [None]
  - Transaminases increased [None]
  - Respiratory failure [None]
  - Dermatitis exfoliative [None]
  - Malaise [None]
  - Upper respiratory tract irritation [None]
